FAERS Safety Report 5557743-6 (Version None)
Quarter: 2007Q4

REPORT INFORMATION
  Report Type: 
  Country: None (occurrence: None)
  Receive Date: 20071214
  Receipt Date: 20071203
  Transmission Date: 20080405
  Serious: Yes (Hospitalization)
  Sender: FDA-Public Use
  Company Number: DE-AMGEN-US255645

PATIENT
  Sex: Female
  Weight: 24.7 kg

DRUGS (9)
  1. ENBREL [Suspect]
     Indication: JUVENILE ARTHRITIS
     Route: 058
  2. ENBREL [Suspect]
     Indication: POLYARTHRITIS
  3. IMUREK [Suspect]
     Route: 048
  4. LANTAREL [Suspect]
     Indication: JUVENILE ARTHRITIS
     Route: 042
  5. LANTAREL [Suspect]
     Indication: POLYARTHRITIS
  6. NORDITROPIN [Concomitant]
     Route: 058
  7. BELOC ZOK [Concomitant]
     Route: 048
  8. ESIDRIX [Concomitant]
  9. INDOMETHACIN [Concomitant]
     Dosage: UNKNOWN
     Route: 065

REACTIONS (4)
  - ALANINE AMINOTRANSFERASE INCREASED [None]
  - BLOOD LACTATE DEHYDROGENASE INCREASED [None]
  - MYELODYSPLASTIC SYNDROME [None]
  - PANCYTOPENIA [None]
